FAERS Safety Report 19144159 (Version 1)
Quarter: 2021Q2

REPORT INFORMATION
  Report Type: Spontaneous
  Country: CA (occurrence: CA)
  Receive Date: 20210416
  Receipt Date: 20210416
  Transmission Date: 20210717
  Serious: Yes (Other)
  Sender: FDA-Public Use
  Company Number: CA-NEBO-PC006768

PATIENT
  Age: 35 Year
  Sex: Female

DRUGS (1)
  1. MONOFERRIC [Suspect]
     Active Substance: FERRIC DERISOMALTOSE
     Indication: HAEMOGLOBIN DECREASED
     Route: 042

REACTIONS (2)
  - Rash [Recovered/Resolved]
  - Dry throat [Recovered/Resolved]
